FAERS Safety Report 9843059 (Version 1)
Quarter: 2014Q1

REPORT INFORMATION
  Report Type: Spontaneous
  Country: US (occurrence: US)
  Receive Date: 20140124
  Receipt Date: 20140124
  Transmission Date: 20141002
  Serious: Yes (Disabling, Other)
  Sender: FDA-Public Use
  Company Number: US-PFIZER INC-2014016077

PATIENT
  Age: 62 Year
  Sex: Male
  Weight: 61.68 kg

DRUGS (2)
  1. ROBITUSSIN MAXIMUM STRENGTH COUGH AND CHEST CONGESTION DM [Suspect]
     Indication: NASOPHARYNGITIS
     Dosage: UNK, AS NEEDED
     Dates: start: 201001
  2. ROBITUSSIN MAXIMUM STRENGTH COUGH AND CHEST CONGESTION DM [Suspect]
     Indication: VIRAL INFECTION

REACTIONS (2)
  - Lung neoplasm malignant [Unknown]
  - Off label use [Unknown]
